FAERS Safety Report 13355809 (Version 1)
Quarter: 2017Q1

REPORT INFORMATION
  Report Type: Spontaneous
  Country: IS (occurrence: IS)
  Receive Date: 20170321
  Receipt Date: 20170321
  Transmission Date: 20170429
  Serious: Yes (Hospitalization, Other)
  Sender: FDA-Public Use
  Company Number: IS-PFIZER INC-2017114646

PATIENT
  Age: 67 Year
  Sex: Female

DRUGS (4)
  1. DALACIN [Suspect]
     Active Substance: CLINDAMYCIN
     Indication: BACTERIAL INFECTION
     Dosage: 150 MG/ML, 3X/DAY
     Route: 042
     Dates: start: 20151113, end: 20151221
  2. LEVAXIN [Concomitant]
     Active Substance: LEVOTHYROXINE SODIUM
     Dosage: 50 UG, 1X/DAY FOR MANY YEARS
  3. DOXYCYCLINE. [Suspect]
     Active Substance: DOXYCYCLINE
     Indication: BACTERIAL INFECTION
     Dosage: 100 MG, 2X/DAY
     Dates: start: 20151221, end: 20160215
  4. DALACIN [Suspect]
     Active Substance: CLINDAMYCIN
     Indication: ACTINOMYCOSIS

REACTIONS (10)
  - Gastrointestinal injury [Not Recovered/Not Resolved]
  - Eating disorder [Not Recovered/Not Resolved]
  - Pain [Not Recovered/Not Resolved]
  - Weight decreased [Not Recovered/Not Resolved]
  - Oesophageal injury [Not Recovered/Not Resolved]
  - Tongue coated [Not Recovered/Not Resolved]
  - Vomiting [Not Recovered/Not Resolved]
  - Loss of consciousness [Unknown]
  - Alopecia [Not Recovered/Not Resolved]
  - Diarrhoea [Not Recovered/Not Resolved]
